FAERS Safety Report 4502226-5 (Version None)
Quarter: 2004Q4

REPORT INFORMATION
  Report Type: 
  Country: None (occurrence: None)
  Receive Date: 20041109
  Receipt Date: 20041027
  Transmission Date: 20050328
  Serious: Yes (Life-Threatening)
  Sender: FDA-Public Use
  Company Number: GBS041015840

PATIENT
  Sex: Female

DRUGS (1)
  1. FLUOXETINE [Suspect]
     Indication: DEPRESSION
     Dosage: 20 MG
     Dates: start: 20040901, end: 20041008

REACTIONS (3)
  - CONDITION AGGRAVATED [None]
  - INTENTIONAL OVERDOSE [None]
  - SUICIDAL IDEATION [None]
